FAERS Safety Report 6177620-X (Version None)
Quarter: 2009Q2

REPORT INFORMATION
  Report Type: 
  Country: None (occurrence: None)
  Receive Date: 20090504
  Receipt Date: 20090130
  Transmission Date: 20091009
  Serious: No
  Sender: FDA-Public Use
  Company Number: US-ALEXION-A200800396

PATIENT
  Sex: Male

DRUGS (7)
  1. SOLIRIS [Suspect]
     Indication: PAROXYSMAL NOCTURNAL HAEMOGLOBINURIA
     Dosage: 600 MG, QW
     Route: 042
     Dates: start: 20081203, end: 20081224
  2. SOLIRIS [Suspect]
     Dosage: 900 MG, Q2WKS
     Route: 042
     Dates: start: 20081231
  3. FOLIC ACID [Concomitant]
     Dosage: 1 MG, QD
     Route: 048
  4. VITAMIN B12                        /00056201/ [Concomitant]
     Dosage: 1000 UG, Q3W
  5. PREDNISONE [Concomitant]
     Dosage: 20 MG, QOD
     Route: 048
  6. PREDNISONE [Concomitant]
     Dosage: 10 MG, QOD
     Route: 048
  7. FERROUS SULFATE TAB [Concomitant]
     Dosage: 325 MG, TID
     Route: 048

REACTIONS (2)
  - BACK PAIN [None]
  - HEADACHE [None]
